FAERS Safety Report 8139305-X (Version None)
Quarter: 2012Q1

REPORT INFORMATION
  Report Type: 
  Country: None (occurrence: None)
  Receive Date: 20120215
  Receipt Date: 20120210
  Transmission Date: 20120608
  Serious: Yes (Death, Hospitalization)
  Sender: FDA-Public Use
  Company Number: PHFR2011GB006426

PATIENT
  Age: 41 Year
  Sex: Male

DRUGS (4)
  1. DIAZEPAM [Suspect]
  2. PROCYCLIDINE HYDROCHLORIDE 2MG TAB [Suspect]
  3. CLOZAPINE [Suspect]
     Route: 048
  4. CITALOPRAM HYDROBROMIDE [Suspect]

REACTIONS (7)
  - ASPIRATION [None]
  - COMA SCALE ABNORMAL [None]
  - HYPOTENSION [None]
  - GRAND MAL CONVULSION [None]
  - CARDIAC ARREST [None]
  - CIRCULATORY COLLAPSE [None]
  - INTENTIONAL OVERDOSE [None]
